FAERS Safety Report 9608427 (Version 1)
Quarter: 2013Q4

REPORT INFORMATION
  Report Type: Report from Study
  Country: US (occurrence: US)
  Receive Date: 20131009
  Receipt Date: 20131009
  Transmission Date: 20140711
  Serious: Yes (Hospitalization)
  Sender: FDA-Public Use
  Company Number: PHEH2013US020778

PATIENT
  Age: 71 Year
  Sex: Female

DRUGS (1)
  1. GILENYA [Suspect]
     Indication: MULTIPLE SCLEROSIS
     Dosage: 0.5 MG, QD
     Route: 048
     Dates: start: 201201

REACTIONS (7)
  - Aneurysm [Unknown]
  - Arterial occlusive disease [Unknown]
  - Volume blood decreased [Unknown]
  - Haemoglobin decreased [Unknown]
  - Palpitations [Unknown]
  - Asthenia [Unknown]
  - Sinusitis [Unknown]
